FAERS Safety Report 9842485 (Version 3)
Quarter: 2015Q3

REPORT INFORMATION
  Report Type: Spontaneous
  Country: US (occurrence: US)
  Receive Date: 20140124
  Receipt Date: 20150730
  Transmission Date: 20151125
  Serious: Yes (Other)
  Sender: FDA-Public Use
  Company Number: US-GILEAD-2011-0042374

PATIENT
  Sex: Male

DRUGS (4)
  1. DIGOXIN. [Concomitant]
     Active Substance: DIGOXIN
  2. AMIODARONE [Concomitant]
     Active Substance: AMIODARONE
  3. RANEXA [Suspect]
     Active Substance: RANOLAZINE
     Indication: PRODUCT USED FOR UNKNOWN INDICATION
     Route: 048
  4. RANEXA [Suspect]
     Active Substance: RANOLAZINE
     Route: 048

REACTIONS (1)
  - Electrocardiogram QT prolonged [Unknown]
